FAERS Safety Report 24814049 (Version 2)
Quarter: 2025Q1

REPORT INFORMATION
  Report Type: Spontaneous
  Country: UA (occurrence: UA)
  Receive Date: 20250107
  Receipt Date: 20250115
  Transmission Date: 20250408
  Serious: Yes (Other)
  Sender: SANDOZ
  Company Number: UA-002147023-NVSC2024UA247305

PATIENT
  Age: 56 Year
  Sex: Male

DRUGS (1)
  1. ZOLEDRONIC ACID [Suspect]
     Active Substance: ZOLEDRONIC ACID
     Indication: Metastases to bone
     Route: 042

REACTIONS (3)
  - Pathological fracture [Unknown]
  - Tooth loss [Unknown]
  - Osteonecrosis of jaw [Unknown]
